FAERS Safety Report 23243435 (Version 1)
Quarter: 2023Q4

REPORT INFORMATION
  Report Type: Report from Study
  Country: CN (occurrence: CN)
  Receive Date: 20231130
  Receipt Date: 20231130
  Transmission Date: 20240110
  Serious: Yes (Hospitalization)
  Sender: FDA-Public Use
  Company Number: CN-ANTENGENE-20231102150

PATIENT
  Age: 51 Year
  Sex: Male
  Weight: 64 kg

DRUGS (9)
  1. SELINEXOR [Suspect]
     Active Substance: SELINEXOR
     Indication: Diffuse large B-cell lymphoma
     Dosage: 60 MG, QW
     Route: 048
     Dates: start: 20230717, end: 20231013
  2. SELINEXOR [Suspect]
     Active Substance: SELINEXOR
     Dosage: UNK
     Route: 048
     Dates: start: 202311
  3. RITUXIMAB [Suspect]
     Active Substance: RITUXIMAB
     Indication: Diffuse large B-cell lymphoma
     Dosage: 626 MG, CYCLIC
     Route: 041
     Dates: start: 20230717, end: 20231013
  4. RITUXIMAB [Suspect]
     Active Substance: RITUXIMAB
     Dosage: 626 MG, CYCLIC
     Route: 041
     Dates: start: 202311
  5. LENALIDOMIDE [Suspect]
     Active Substance: LENALIDOMIDE
     Indication: Diffuse large B-cell lymphoma
     Dosage: 25 MG, CYCLIC
     Route: 048
     Dates: start: 20230717, end: 20231013
  6. LENALIDOMIDE [Suspect]
     Active Substance: LENALIDOMIDE
     Dosage: UNK
     Route: 048
     Dates: start: 202311
  7. AKYNZEO [Concomitant]
     Indication: Prophylaxis of nausea and vomiting
     Dosage: UNK UNK, WEEKLY
     Route: 048
     Dates: start: 20230914, end: 20231107
  8. GRANULOCYTE COLONY-STIMULATING FACTOR NOS [Concomitant]
     Active Substance: GRANULOCYTE COLONY-STIMULATING FACTOR NOS
     Indication: White blood cell count decreased
     Dosage: UNK, SINGLE
     Route: 058
  9. GRANULOCYTE COLONY-STIMULATING FACTOR NOS [Concomitant]
     Active Substance: GRANULOCYTE COLONY-STIMULATING FACTOR NOS
     Indication: Neutrophil count decreased

REACTIONS (1)
  - Platelet count decreased [Recovering/Resolving]

NARRATIVE: CASE EVENT DATE: 20231110
